FAERS Safety Report 19065745 (Version 2)
Quarter: 2021Q1

REPORT INFORMATION
  Report Type: Spontaneous
  Country: ES (occurrence: ES)
  Receive Date: 20210327
  Receipt Date: 20210329
  Transmission Date: 20210420
  Serious: Yes (Other)
  Sender: FDA-Public Use
  Company Number: ES-TEVA-2021-ES-1893966

PATIENT
  Age: 48 Year
  Sex: Male

DRUGS (4)
  1. MAGNESIUM [Interacting]
     Active Substance: MAGNESIUM
     Dosage: 200 MILLIGRAM DAILY;
     Route: 048
     Dates: start: 20191101, end: 20191210
  2. EMTRICITABINE W/TENOFOVIR [Suspect]
     Active Substance: EMTRICITABINE\TENOFOVIR DISOPROXIL
     Indication: ANTIRETROVIRAL THERAPY
     Dosage: UNK
     Route: 065
     Dates: start: 20150101, end: 20200128
  3. SYMTUZA [Suspect]
     Active Substance: COBICISTAT\DARUNAVIR\EMTRICITABINE\TENOFOVIR ALAFENAMIDE
     Indication: HIV INFECTION
     Route: 048
     Dates: start: 2020
  4. RALTEGRAVIR POTASSIUM [Interacting]
     Active Substance: RALTEGRAVIR POTASSIUM
     Indication: ANTIRETROVIRAL THERAPY
     Dosage: 1200 MILLIGRAM DAILY;
     Route: 048
     Dates: start: 20150101, end: 20200128

REACTIONS (4)
  - Viral load increased [Unknown]
  - Drug interaction [Unknown]
  - Virologic failure [Unknown]
  - Labelled drug-drug interaction medication error [Unknown]

NARRATIVE: CASE EVENT DATE: 2019
